FAERS Safety Report 5591193-1 (Version None)
Quarter: 2008Q1

REPORT INFORMATION
  Report Type: 
  Country: None (occurrence: None)
  Receive Date: 20080115
  Receipt Date: 20080110
  Transmission Date: 20080703
  Serious: Yes (Hospitalization)
  Sender: FDA-Public Use
  Company Number: FR-JNJFOC-20080102702

PATIENT
  Age: 49 Year
  Sex: Female

DRUGS (9)
  1. REMICADE [Suspect]
     Route: 042
  2. REMICADE [Suspect]
     Route: 042
  3. REMICADE [Suspect]
     Route: 042
  4. REMICADE [Suspect]
     Route: 042
  5. REMICADE [Suspect]
     Indication: COLITIS ULCERATIVE
     Route: 042
  6. HYDROCORTISONE [Suspect]
     Indication: COLITIS ULCERATIVE
     Route: 042
  7. ENTOCORT EC [Suspect]
     Indication: COLITIS ULCERATIVE
     Route: 048
  8. IMUREL [Suspect]
     Indication: COLITIS ULCERATIVE
     Dosage: THREE WEEKS
     Route: 048
  9. SOLUPRED [Suspect]
     Indication: COLITIS ULCERATIVE
     Route: 048

REACTIONS (1)
  - LUNG ADENOCARCINOMA [None]
